FAERS Safety Report 8365097-5 (Version None)
Quarter: 2012Q2

REPORT INFORMATION
  Report Type: 
  Country: None (occurrence: None)
  Receive Date: 20120516
  Receipt Date: 20120510
  Transmission Date: 20120825
  Serious: Yes (Other)
  Sender: FDA-Public Use
  Company Number: US-BAYER-2012-046835

PATIENT
  Age: 19 Year
  Sex: Female

DRUGS (2)
  1. GADAVIST [Suspect]
     Indication: CONVULSION
  2. GADAVIST [Suspect]
     Indication: NUCLEAR MAGNETIC RESONANCE IMAGING BRAIN
     Dosage: 10 ML, ONCE
     Dates: start: 20120509, end: 20120509

REACTIONS (5)
  - VOMITING [None]
  - UNRESPONSIVE TO STIMULI [None]
  - NAUSEA [None]
  - UNEVALUABLE EVENT [None]
  - THROAT TIGHTNESS [None]
